FAERS Safety Report 4822965-6 (Version None)
Quarter: 2005Q4

REPORT INFORMATION
  Report Type: 
  Country: None (occurrence: None)
  Receive Date: 20051108
  Receipt Date: 20050524
  Transmission Date: 20060501
  Serious: Yes (Other)
  Sender: FDA-Public Use
  Company Number: US-AMGEN-US135455

PATIENT
  Sex: Male

DRUGS (4)
  1. ENBREL [Suspect]
     Indication: RHEUMATOID ARTHRITIS
     Route: 058
     Dates: start: 20021028, end: 20050225
  2. PLAQUENIL [Concomitant]
  3. BEXTRA [Concomitant]
  4. DECADRON [Concomitant]

REACTIONS (5)
  - CEREBELLAR ATAXIA [None]
  - CEREBRAL ATROPHY [None]
  - CONDITION AGGRAVATED [None]
  - MUSCLE ATROPHY [None]
  - MUSCLE SPASMS [None]
